FAERS Safety Report 11628130 (Version 2)
Quarter: 2015Q4

REPORT INFORMATION
  Report Type: Spontaneous
  Country: US (occurrence: US)
  Receive Date: 20151014
  Receipt Date: 20151112
  Transmission Date: 20160304
  Serious: No
  Sender: FDA-Public Use
  Company Number: US-BAYER-2015-443487

PATIENT
  Age: 71 Year
  Sex: Male
  Weight: 103.4 kg

DRUGS (1)
  1. MIRALAX [Suspect]
     Active Substance: POLYETHYLENE GLYCOL 3350
     Indication: COLONOSCOPY
     Dosage: 1 DF, PRN
     Route: 048

REACTIONS (2)
  - Product use issue [None]
  - Circumstance or information capable of leading to medication error [None]
